FAERS Safety Report 19174777 (Version 1)
Quarter: 2021Q2

REPORT INFORMATION
  Report Type: Report from Study
  Country: MX (occurrence: MX)
  Receive Date: 20210423
  Receipt Date: 20210423
  Transmission Date: 20210717
  Serious: Yes (Other)
  Sender: FDA-Public Use
  Company Number: MX-ASTRAZENECA-2021A343928

PATIENT
  Age: 47 Year
  Sex: Female
  Weight: 65 kg

DRUGS (6)
  1. BYDUREON [Suspect]
     Active Substance: EXENATIDE
     Indication: METABOLIC DISORDER
     Route: 065
  2. INSULIN GLARGINE [Concomitant]
     Active Substance: INSULIN GLARGINE
     Indication: BLOOD GLUCOSE
     Dosage: 26 IU AGAIN IN THE MORNING
     Dates: start: 202101
  3. SERTRALINE [Concomitant]
     Active Substance: SERTRALINE HYDROCHLORIDE
     Indication: ANXIETY DISORDER
     Dosage: 1 IN THE MORNING ORALLY
     Dates: start: 202008
  4. ALPRAZOLAM. [Concomitant]
     Active Substance: ALPRAZOLAM
     Indication: DEPRESSION
     Dosage: 0.25MG 1 AT NIGHT
     Route: 048
     Dates: start: 201609
  5. VIDAGLIPTIN [Concomitant]
     Indication: BLOOD GLUCOSE
     Dosage: 1 DAILY IN THE MORNING
     Route: 048
     Dates: start: 201609
  6. LYNPARZA [Suspect]
     Active Substance: OLAPARIB
     Indication: BREAST CANCER METASTATIC
     Dosage: THE DRUG IS ADMINISTERED 8 CAPSULES ORALLY EVERY 12 HOURS
     Route: 048
     Dates: start: 20210405

REACTIONS (13)
  - Parosmia [Unknown]
  - Decreased activity [Unknown]
  - Decreased appetite [Unknown]
  - Hot flush [Unknown]
  - Inflammation [Unknown]
  - Fatigue [Unknown]
  - Nausea [Unknown]
  - Disturbance in attention [Unknown]
  - Impaired work ability [Unknown]
  - Dizziness [Unknown]
  - Aptyalism [Unknown]
  - Irritability [Unknown]
  - Sensory loss [Unknown]
